FAERS Safety Report 12119165 (Version 1)
Quarter: 2016Q1

REPORT INFORMATION
  Report Type: Spontaneous
  Country: US (occurrence: None)
  Receive Date: 20160225
  Receipt Date: 20160225
  Transmission Date: 20160526
  Serious: Yes (Disabling)
  Sender: FDA-Public Use
  Company Number: None

PATIENT
  Age: 37 Year
  Sex: Female
  Weight: 56.7 kg

DRUGS (10)
  1. WARFARIN [Concomitant]
     Active Substance: WARFARIN
  2. CAGE MITRAL VALVE [Concomitant]
  3. BRAZIL NUTS [Concomitant]
  4. MIRENA [Suspect]
     Active Substance: LEVONORGESTREL
  5. CILANTRO [Concomitant]
  6. STARR EDWARDS BALL [Concomitant]
  7. METHIMAZOLE. [Concomitant]
     Active Substance: METHIMAZOLE
  8. JUICE PLUS [Concomitant]
     Active Substance: DIETARY SUPPLEMENT
  9. GARLIC. [Concomitant]
     Active Substance: GARLIC
  10. MAGNESIUM [Concomitant]
     Active Substance: MAGNESIUM

REACTIONS (2)
  - Basedow^s disease [None]
  - Hyperthyroidism [None]
